FAERS Safety Report 15385910 (Version 4)
Quarter: 2018Q4

REPORT INFORMATION
  Report Type: Spontaneous
  Country: US (occurrence: US)
  Receive Date: 20180914
  Receipt Date: 20181205
  Transmission Date: 20190204
  Serious: Yes (Death, Hospitalization, Other)
  Sender: FDA-Public Use
  Company Number: US-GLAXOSMITHKLINE-US2018GSK166787

PATIENT
  Age: 74 Year
  Sex: Male

DRUGS (30)
  1. ALLOPURINOL. [Concomitant]
     Active Substance: ALLOPURINOL
  2. ASPIRIN. [Concomitant]
     Active Substance: ASPIRIN
  3. LORAZEPAM. [Concomitant]
     Active Substance: LORAZEPAM
  4. SPIRONOLACTONE. [Concomitant]
     Active Substance: SPIRONOLACTONE
  5. HYDROCODONE-ACETAMINOPHEN [Concomitant]
     Active Substance: ACETAMINOPHEN\HYDROCODONE
  6. ALBUTEROL SULFATE. [Concomitant]
     Active Substance: ALBUTEROL SULFATE
  7. PRAVASTATIN. [Concomitant]
     Active Substance: PRAVASTATIN
  8. TYLENOL [Concomitant]
     Active Substance: ACETAMINOPHEN
  9. OXYGEN. [Concomitant]
     Active Substance: OXYGEN
  10. ZAROXOLYN [Concomitant]
     Active Substance: METOLAZONE
  11. IPRATROPIUM BROMIDE AND ALBUTEROL SULFATE [Concomitant]
     Active Substance: ALBUTEROL SULFATE\IPRATROPIUM BROMIDE
  12. METOLAZONE. [Concomitant]
     Active Substance: METOLAZONE
  13. FUROSEMIDE. [Concomitant]
     Active Substance: FUROSEMIDE
  14. HYOSCYAMINE. [Concomitant]
     Active Substance: HYOSCYAMINE
  15. NORCO [Concomitant]
     Active Substance: ACETAMINOPHEN\HYDROCODONE BITARTRATE
     Indication: BACK PAIN
  16. NORCO [Concomitant]
     Active Substance: ACETAMINOPHEN\HYDROCODONE BITARTRATE
     Indication: PAIN
  17. ELIQUIS [Concomitant]
     Active Substance: APIXABAN
  18. K-DUR [Concomitant]
     Active Substance: POTASSIUM CHLORIDE
  19. COREG [Concomitant]
     Active Substance: CARVEDILOL
  20. DULCOLAX NOS [Concomitant]
     Active Substance: BISACODYL OR DOCUSATE SODIUM
  21. PLAVIX [Concomitant]
     Active Substance: CLOPIDOGREL BISULFATE
  22. LASIX [Concomitant]
     Active Substance: FUROSEMIDE
  23. PRINIVIL [Concomitant]
     Active Substance: LISINOPRIL
  24. POTASSIUM CHLORIDE. [Concomitant]
     Active Substance: POTASSIUM CHLORIDE
  25. BREO ELLIPTA [Suspect]
     Active Substance: FLUTICASONE FUROATE\VILANTEROL TRIFENATATE
     Indication: DYSPNOEA
     Dosage: 1 PUFF(S), QD
     Route: 048
  26. LAXATIVE SENNA [Concomitant]
  27. LISINOPRIL. [Concomitant]
     Active Substance: LISINOPRIL
  28. GLIMEPIRIDE. [Concomitant]
     Active Substance: GLIMEPIRIDE
  29. COMPAZINE [Concomitant]
     Active Substance: PROCHLORPERAZINE MALEATE
  30. HALDOL [Concomitant]
     Active Substance: HALOPERIDOL

REACTIONS (45)
  - Cardiac failure [Fatal]
  - Renal failure [Fatal]
  - Dyspnoea [Unknown]
  - Rales [Unknown]
  - Cough [Unknown]
  - Oedema [Unknown]
  - Back pain [Unknown]
  - Orthostatic hypotension [Unknown]
  - Dysuria [Unknown]
  - Confusional state [Unknown]
  - Hyponatraemia [Unknown]
  - Condition aggravated [Unknown]
  - Chronic obstructive pulmonary disease [Unknown]
  - Barrel chest [Unknown]
  - Breath sounds abnormal [Unknown]
  - Cardiac failure congestive [Unknown]
  - Acute kidney injury [Unknown]
  - Tachycardia [Unknown]
  - Hospice care [Unknown]
  - Mastication disorder [Unknown]
  - Balance disorder [Unknown]
  - Nocturia [Unknown]
  - Peripheral swelling [Unknown]
  - Acute respiratory failure [Unknown]
  - Dysphagia [Unknown]
  - Hyperbilirubinaemia [Unknown]
  - Orthopnoea [Unknown]
  - Pulmonary embolism [Unknown]
  - Asthenia [Unknown]
  - Hypersomnia [Unknown]
  - Chest pain [Unknown]
  - Productive cough [Unknown]
  - Tachypnoea [Unknown]
  - Somnolence [Unknown]
  - Haematuria [Unknown]
  - Dyslipidaemia [Unknown]
  - Ill-defined disorder [Unknown]
  - Dyspnoea exertional [Unknown]
  - Loss of personal independence in daily activities [Unknown]
  - Fatigue [Unknown]
  - Decreased appetite [Unknown]
  - Gait disturbance [Unknown]
  - Respiratory failure [Fatal]
  - Pleural effusion [Unknown]
  - Cognitive disorder [Unknown]

NARRATIVE: CASE EVENT DATE: 20180820
